FAERS Safety Report 5294944-9 (Version None)
Quarter: 2007Q2

REPORT INFORMATION
  Report Type: 
  Country: None (occurrence: None)
  Receive Date: 20070412
  Receipt Date: 20060720
  Transmission Date: 20071010
  Serious: Yes (Other)
  Sender: FDA-Public Use
  Company Number: 200613837EU

PATIENT
  Sex: Male

DRUGS (4)
  1. NICORETTE [Suspect]
     Indication: SMOKING CESSATION THERAPY
     Route: 002
     Dates: start: 20050501
  2. NICORETTE [Suspect]
     Route: 002
     Dates: start: 20050501
  3. UNSPECIFIED PATCH [Suspect]
     Indication: DRUG USE FOR UNKNOWN INDICATION
     Route: 065
  4. ANTIBIOTICS [Suspect]
     Indication: INFECTION
     Route: 065

REACTIONS (8)
  - ANGINA PECTORIS [None]
  - INFECTION [None]
  - INTENTIONAL DRUG MISUSE [None]
  - NICOTINE DEPENDENCE [None]
  - ORAL MUCOSAL BLISTERING [None]
  - RASH [None]
  - SWOLLEN TONGUE [None]
  - TOOTH ABSCESS [None]
